FAERS Safety Report 10017250 (Version 1)
Quarter: 2014Q1

REPORT INFORMATION
  Report Type: Report from Study
  Country: US (occurrence: US)
  Receive Date: 20140318
  Receipt Date: 20140318
  Transmission Date: 20141002
  Serious: Yes (Other)
  Sender: FDA-Public Use
  Company Number: US-ROCHE-1360444

PATIENT
  Sex: Male

DRUGS (11)
  1. AVASTIN [Suspect]
     Indication: COLORECTAL CANCER METASTATIC
     Route: 065
     Dates: start: 200806, end: 200812
  2. AVASTIN [Suspect]
     Route: 065
     Dates: start: 200906, end: 201009
  3. AVASTIN [Suspect]
     Route: 065
     Dates: start: 201108, end: 2012
  4. XELODA [Suspect]
     Indication: COLORECTAL CANCER METASTATIC
     Dosage: 1500 MG (3 TABLETS) IN MORNING AND 1000 MG (2 TABLETS) IN EVENING
     Route: 065
     Dates: start: 200903, end: 200905
  5. ASPIRIN [Concomitant]
     Route: 048
  6. LIPITOR [Concomitant]
     Route: 048
  7. FLOMAX (UNITED STATES) [Concomitant]
     Route: 048
  8. PLAVIX [Concomitant]
  9. FOLINIC ACID [Concomitant]
  10. IRINOTECAN [Concomitant]
  11. 5-FU [Concomitant]

REACTIONS (10)
  - Catheterisation cardiac [Unknown]
  - Disease progression [Unknown]
  - Rectal haemorrhage [Unknown]
  - Anorectal discomfort [Unknown]
  - Rectal discharge [Unknown]
  - Asthenia [Unknown]
  - Palmar-plantar erythrodysaesthesia syndrome [Recovering/Resolving]
  - Proctalgia [Unknown]
  - Dysplasia [Unknown]
  - Adenocarcinoma [Unknown]
